FAERS Safety Report 5934634-X (Version None)
Quarter: 2008Q4

REPORT INFORMATION
  Report Type: 
  Country: None (occurrence: None)
  Receive Date: 20081029
  Receipt Date: 20081020
  Transmission Date: 20090506
  Serious: Yes (Death)
  Sender: FDA-Public Use
  Company Number: US-PFIZER INC-2008088703

PATIENT

DRUGS (1)
  1. ALDACTONE [Suspect]
     Dates: start: 20081013

REACTIONS (1)
  - DEATH [None]
